FAERS Safety Report 23191712 (Version 1)
Quarter: 2023Q4

REPORT INFORMATION
  Report Type: Spontaneous
  Country: JP (occurrence: JP)
  Receive Date: 20231116
  Receipt Date: 20231116
  Transmission Date: 20240110
  Serious: Yes (Other)
  Sender: FDA-Public Use
  Company Number: JP-JNJFOC-20231135781

PATIENT
  Age: 68 Year
  Sex: Male

DRUGS (1)
  1. IMBRUVICA [Suspect]
     Active Substance: IBRUTINIB
     Indication: Mantle cell lymphoma
     Dosage: DOSE UNKNOWN
     Route: 048

REACTIONS (7)
  - Myelodysplastic syndrome [Unknown]
  - Campylobacter sepsis [Unknown]
  - Adrenal thrombosis [Unknown]
  - Pneumococcal sepsis [Unknown]
  - Pericarditis [Unknown]
  - Herpes zoster [Unknown]
  - Pneumonia pneumococcal [Unknown]
